FAERS Safety Report 13329673 (Version 1)
Quarter: 2017Q1

REPORT INFORMATION
  Report Type: Spontaneous
  Country: US (occurrence: US)
  Receive Date: 20170313
  Receipt Date: 20170313
  Transmission Date: 20170428
  Serious: No
  Sender: FDA-Public Use
  Company Number: US-009507513-1703USA005266

PATIENT
  Sex: Female
  Weight: 142.86 kg

DRUGS (1)
  1. IMPLANON [Suspect]
     Active Substance: ETONOGESTREL
     Indication: PRODUCT USED FOR UNKNOWN INDICATION
     Dosage: UNK
     Route: 059
     Dates: start: 2009

REACTIONS (7)
  - Incorrect drug administration duration [Not Recovered/Not Resolved]
  - Weight increased [Unknown]
  - Hypertension [Unknown]
  - Complication associated with device [Not Recovered/Not Resolved]
  - Pain in extremity [Not Recovered/Not Resolved]
  - Device difficult to use [Not Recovered/Not Resolved]
  - Migration of implanted drug [Not Recovered/Not Resolved]

NARRATIVE: CASE EVENT DATE: 2009
